FAERS Safety Report 5424658-3 (Version None)
Quarter: 2007Q3

REPORT INFORMATION
  Report Type: 
  Country: None (occurrence: None)
  Receive Date: 20070822
  Receipt Date: 20070822
  Transmission Date: 20080115
  Serious: No
  Sender: FDA-Public Use
  Company Number: None

PATIENT
  Sex: Female
  Weight: 117.9352 kg

DRUGS (2)
  1. FLUOXETINE [Suspect]
     Indication: ANXIETY
     Dosage: 20 MG TWICE QD QD PO
     Route: 048
     Dates: start: 20021101
  2. FLUOXETINE [Suspect]
     Indication: DEPRESSION
     Dosage: 20 MG TWICE QD QD PO
     Route: 048
     Dates: start: 20021101

REACTIONS (4)
  - AGITATION [None]
  - FEELING DRUNK [None]
  - ILL-DEFINED DISORDER [None]
  - PHARMACEUTICAL PRODUCT COMPLAINT [None]
